FAERS Safety Report 13670360 (Version 1)
Quarter: 2017Q2

REPORT INFORMATION
  Report Type: Report from Study
  Country: US (occurrence: US)
  Receive Date: 20170620
  Receipt Date: 20170620
  Transmission Date: 20170830
  Serious: No
  Sender: FDA-Public Use
  Company Number: PHEH2017US018361

PATIENT
  Sex: Male

DRUGS (2)
  1. ENTRESTO [Suspect]
     Active Substance: SACUBITRIL\VALSARTAN
     Indication: PRODUCT USED FOR UNKNOWN INDICATION
     Dosage: SACUBITRIL 51 MG/VALSARTAN 49 MG, 1 DF
     Route: 065
  2. ENTRESTO [Suspect]
     Active Substance: SACUBITRIL\VALSARTAN
     Dosage: SACUBITRIL 26MG/VALSARTAN 24 MG, 1 DF
     Route: 065

REACTIONS (2)
  - Hypotension [Unknown]
  - Presyncope [Unknown]
